FAERS Safety Report 4608379-2 (Version None)
Quarter: 2005Q1

REPORT INFORMATION
  Report Type: 
  Country: None (occurrence: None)
  Receive Date: 20050311
  Receipt Date: 20050311
  Transmission Date: 20050727
  Serious: Yes (Other)
  Sender: FDA-Public Use
  Company Number: None

PATIENT
  Sex: Male
  Weight: 113 kg

DRUGS (1)
  1. HALDOL [Suspect]
     Indication: BIPOLAR DISORDER
     Dosage: 5 MG  6H PRN
     Dates: start: 20050119, end: 20050207

REACTIONS (2)
  - DYSARTHRIA [None]
  - EXTRAPYRAMIDAL DISORDER [None]
